FAERS Safety Report 23777910 (Version 4)
Quarter: 2024Q3

REPORT INFORMATION
  Report Type: Spontaneous
  Country: US (occurrence: US)
  Receive Date: 20240424
  Receipt Date: 20240910
  Transmission Date: 20241016
  Serious: No
  Sender: PFIZER
  Company Number: US-PFIZER INC-202400078731

PATIENT
  Age: 51 Year
  Sex: Male

DRUGS (1)
  1. GENOTROPIN [Suspect]
     Active Substance: SOMATROPIN
     Indication: Hypopituitarism
     Dosage: NOT YET STARTED; 7 DAYS/WEEK, PEN NEEDLE GAUGE 31

REACTIONS (3)
  - Device difficult to use [Unknown]
  - Device use error [Unknown]
  - Device leakage [Unknown]
